FAERS Safety Report 23594824 (Version 2)
Quarter: 2024Q1

REPORT INFORMATION
  Report Type: Report from Study
  Country: US (occurrence: US)
  Receive Date: 20240305
  Receipt Date: 20240329
  Transmission Date: 20240410
  Serious: Yes (Other)
  Sender: FDA-Public Use
  Company Number: US-ABBVIE-5570388

PATIENT
  Sex: Female

DRUGS (2)
  1. HUMIRA [Suspect]
     Active Substance: ADALIMUMAB
     Indication: Rheumatoid arthritis
     Dosage: CITRATE FREE?STRENGTH: 40 MG?LAST ADMIN DATE-2023
     Route: 058
     Dates: start: 20230320
  2. HUMIRA [Suspect]
     Active Substance: ADALIMUMAB
     Dosage: CITRATE FREE?STRENGTH: 40 MG
     Route: 058
     Dates: start: 20230401

REACTIONS (11)
  - Urinary bladder suspension [Recovering/Resolving]
  - Injection site pain [Recovered/Resolved]
  - Depression [Recovering/Resolving]
  - Pain [Recovering/Resolving]
  - Limb mass [Unknown]
  - Injection site pain [Recovered/Resolved]
  - Contusion [Unknown]
  - Pain of skin [Unknown]
  - Hernia [Not Recovered/Not Resolved]
  - Hernia [Unknown]
  - Anxiety [Recovering/Resolving]

NARRATIVE: CASE EVENT DATE: 20230101
